FAERS Safety Report 5284463-8 (Version None)
Quarter: 2007Q1

REPORT INFORMATION
  Report Type: 
  Country: None (occurrence: None)
  Receive Date: 20070328
  Receipt Date: 20070316
  Transmission Date: 20070707
  Serious: Yes (Hospitalization)
  Sender: FDA-Public Use
  Company Number: 2007RL000115

PATIENT
  Age: 7 Week
  Sex: Male
  Weight: 3.5 kg

DRUGS (2)
  1. PROPAFENONE HCL [Suspect]
     Indication: VENTRICULAR EXTRASYSTOLES
     Dosage: 10 MG; TID; PO
     Route: 048
     Dates: start: 20070225
  2. DIGOXIN [Concomitant]

REACTIONS (4)
  - ALANINE AMINOTRANSFERASE INCREASED [None]
  - ASPARTATE AMINOTRANSFERASE INCREASED [None]
  - GAMMA-GLUTAMYLTRANSFERASE INCREASED [None]
  - HEPATIC ENZYME INCREASED [None]
